FAERS Safety Report 19763716 (Version 1)
Quarter: 2021Q3

REPORT INFORMATION
  Report Type: Spontaneous
  Country: US (occurrence: US)
  Receive Date: 20210830
  Receipt Date: 20210830
  Transmission Date: 20211014
  Serious: Yes (Life-Threatening, Hospitalization, Other)
  Sender: FDA-Public Use
  Company Number: US-HIKMA PHARMACEUTICALS USA INC.-US-H14001-21-55291

PATIENT
  Sex: Female

DRUGS (27)
  1. HEPARIN [Suspect]
     Active Substance: HEPARIN SODIUM
     Indication: PROPHYLAXIS
     Route: 065
  2. HEPARIN [Suspect]
     Active Substance: HEPARIN SODIUM
     Route: 065
  3. HEPARIN [Suspect]
     Active Substance: HEPARIN SODIUM
     Route: 065
  4. NITRIC OXIDE. [Concomitant]
     Active Substance: NITRIC OXIDE
     Indication: HYPOXIC-ISCHAEMIC ENCEPHALOPATHY
     Dosage: UNKNOWN
  5. VASOPRESSIN. [Concomitant]
     Active Substance: VASOPRESSIN
     Indication: HYPOXIC-ISCHAEMIC ENCEPHALOPATHY
     Dosage: 80 MILLIUNITS/KG/HOUR
     Route: 065
  6. HEPARIN [Suspect]
     Active Substance: HEPARIN SODIUM
     Route: 065
  7. HEPARIN [Suspect]
     Active Substance: HEPARIN SODIUM
     Route: 065
  8. HYDROCORTISONE. [Concomitant]
     Active Substance: HYDROCORTISONE
     Indication: HYPOXIC-ISCHAEMIC ENCEPHALOPATHY
     Dosage: UNKNOWN
     Route: 065
  9. CEFOTAXIME [Concomitant]
     Active Substance: CEFOTAXIME SODIUM
     Indication: SEPSIS
     Dosage: UNKNOWN
     Route: 065
  10. HEPARIN [Suspect]
     Active Substance: HEPARIN SODIUM
     Route: 065
  11. GENTAMICIN. [Concomitant]
     Active Substance: GENTAMICIN
     Indication: SEPSIS
     Dosage: UNKNOWN
     Route: 065
  12. HEPARIN [Suspect]
     Active Substance: HEPARIN SODIUM
     Route: 065
  13. HEPARIN [Suspect]
     Active Substance: HEPARIN SODIUM
     Route: 065
  14. HEPARIN [Suspect]
     Active Substance: HEPARIN SODIUM
     Route: 065
  15. HEPARIN [Suspect]
     Active Substance: HEPARIN SODIUM
     Route: 065
  16. HEPARIN [Suspect]
     Active Substance: HEPARIN SODIUM
     Route: 065
  17. HEPARIN [Suspect]
     Active Substance: HEPARIN SODIUM
     Route: 065
  18. DOBUTAMINE [Concomitant]
     Active Substance: DOBUTAMINE HYDROCHLORIDE
     Indication: HYPOXIC-ISCHAEMIC ENCEPHALOPATHY
     Route: 042
  19. AMPICILLIN [Concomitant]
     Active Substance: AMPICILLIN
     Indication: SEPSIS
     Dosage: UNKNOWN
     Route: 065
  20. HEPARIN [Suspect]
     Active Substance: HEPARIN SODIUM
     Route: 065
  21. HEPARIN [Suspect]
     Active Substance: HEPARIN SODIUM
     Route: 065
  22. HEPARIN [Suspect]
     Active Substance: HEPARIN SODIUM
     Route: 065
  23. DOPAMINE [Concomitant]
     Active Substance: DOPAMINE HYDROCHLORIDE
     Indication: HYPOXIC-ISCHAEMIC ENCEPHALOPATHY
     Route: 042
  24. HEPARIN [Suspect]
     Active Substance: HEPARIN SODIUM
     Route: 065
  25. HEPARIN [Suspect]
     Active Substance: HEPARIN SODIUM
     Route: 065
  26. HEPARIN [Suspect]
     Active Substance: HEPARIN SODIUM
     Route: 065
  27. HEPARIN [Suspect]
     Active Substance: HEPARIN SODIUM
     Route: 065

REACTIONS (10)
  - Pulmonary haemorrhage neonatal [Recovering/Resolving]
  - Newborn persistent pulmonary hypertension [Unknown]
  - Ventricular dysfunction [Unknown]
  - Fluid overload [Unknown]
  - Enterobacter pneumonia [Recovering/Resolving]
  - Neonatal cardiac failure [Unknown]
  - Pulmonary hypertension [Unknown]
  - Atelectasis neonatal [Recovering/Resolving]
  - Bradycardia neonatal [Unknown]
  - Intraventricular haemorrhage neonatal [Unknown]
